FAERS Safety Report 4370140-4 (Version None)
Quarter: 2004Q2

REPORT INFORMATION
  Report Type: 
  Country: None (occurrence: None)
  Receive Date: 20040603
  Receipt Date: 20040421
  Transmission Date: 20050107
  Serious: No
  Sender: FDA-Public Use
  Company Number: US-BRISTOL-MYERS SQUIBB COMPANY-12567962

PATIENT
  Age: 16 Year
  Sex: Female

DRUGS (2)
  1. ABILIFY [Suspect]
     Indication: PSYCHOTIC DISORDER
     Route: 048
     Dates: start: 20031001, end: 20040101
  2. ABILIFY [Suspect]
     Indication: BIPOLAR DISORDER
     Route: 048
     Dates: start: 20031001, end: 20040101

REACTIONS (2)
  - GAIT DISTURBANCE [None]
  - PARKINSONISM [None]
